FAERS Safety Report 17229110 (Version 1)
Quarter: 2020Q1

REPORT INFORMATION
  Report Type: Spontaneous
  Country: US (occurrence: US)
  Receive Date: 20200102
  Receipt Date: 20200102
  Transmission Date: 20200409
  Serious: No
  Sender: FDA-Public Use
  Company Number: None

PATIENT
  Age: 49 Year
  Sex: Female
  Weight: 66.15 kg

DRUGS (1)
  1. LEVOFLOXACIN 500MG TABLETS [Suspect]
     Active Substance: LEVOFLOXACIN
     Indication: UPPER RESPIRATORY TRACT INFECTION
     Dosage: ?          QUANTITY:7 TABLET(S);?
     Route: 048
     Dates: start: 20191230, end: 20200102

REACTIONS (2)
  - Grip strength decreased [None]
  - Pain in extremity [None]

NARRATIVE: CASE EVENT DATE: 20200102
